FAERS Safety Report 7745339 (Version 3)
Quarter: 2012Q4

REPORT INFORMATION
  Report Type: 
  Country: US (occurrence: US)
  Receive Date: 20101231
  Receipt Date: 20121018
  Transmission Date: 20130627
  Serious: Yes (Other)
  Sender: FDA-Public Use
  Company Number: US-US-EMD SERONO, INC.-7033472

PATIENT
  Age: 42 Year
  Sex: Male
  Weight: 87 kg

DRUGS (2)
  1. REBIF [Suspect]
     Indication: MULTIPLE SCLEROSIS
     Dates: start: 2006, end: 2011
  2. TEGRETOL [Concomitant]
     Indication: PARTIAL SEIZURES
     Dates: start: 2005

REACTIONS (1)
  - Grand mal convulsion [Not Recovered/Not Resolved]
